FAERS Safety Report 7775961-3 (Version None)
Quarter: 2011Q3

REPORT INFORMATION
  Report Type: 
  Country: None (occurrence: None)
  Receive Date: 20110923
  Receipt Date: 20110914
  Transmission Date: 20111222
  Serious: Yes (Hospitalization, Other)
  Sender: FDA-Public Use
  Company Number: US-ASTRAZENECA-2010SE42799

PATIENT
  Age: 78 Year
  Sex: Female

DRUGS (6)
  1. VASOTEC [Concomitant]
  2. CRESTOR [Suspect]
     Route: 048
  3. TAMOXIFEN CITRATE [Suspect]
     Route: 048
  4. COREG [Concomitant]
  5. ARIMIDEX [Suspect]
     Route: 048
  6. PLAVIX [Concomitant]

REACTIONS (7)
  - BREAST CANCER RECURRENT [None]
  - ANGIOPATHY [None]
  - CORONARY ARTERY OCCLUSION [None]
  - MYOCARDIAL INFARCTION [None]
  - ARTERIAL OCCLUSIVE DISEASE [None]
  - LIMB DISCOMFORT [None]
  - BREAST CANCER FEMALE [None]
